FAERS Safety Report 8987728 (Version 2)
Quarter: 2013Q2

REPORT INFORMATION
  Report Type: Report from Study
  Country: JP (occurrence: JP)
  Receive Date: 20121227
  Receipt Date: 20130618
  Transmission Date: 20140414
  Serious: Yes (Hospitalization)
  Sender: FDA-Public Use
  Company Number: JP-VERTEX PHARMACEUTICAL INC.-2012-023772

PATIENT
  Age: 66 Year
  Sex: Male

DRUGS (13)
  1. VX-950 (TELAPREVIR) [Suspect]
     Indication: CHRONIC HEPATITIS C
     Dosage: 2250 MG, QD
     Route: 048
     Dates: start: 20120905, end: 20120909
  2. VX-950 (TELAPREVIR) [Suspect]
     Dosage: 1000 MG, QD
     Route: 048
     Dates: start: 20120919, end: 20121128
  3. REBETOL [Suspect]
     Indication: CHRONIC HEPATITIS C
     Dosage: 600 MG, QD
     Route: 048
     Dates: start: 20120905, end: 20120909
  4. REBETOL [Suspect]
     Dosage: 400 MG, QD
     Route: 048
     Dates: start: 20120919, end: 20121030
  5. PEGINTERFERON ALFA-2B [Suspect]
     Indication: CHRONIC HEPATITIS C
     Dosage: 80 ?G, QW
     Route: 058
     Dates: start: 20120905, end: 20120911
  6. PEGINTERFERON ALFA-2B [Suspect]
     Dosage: 80 ?G, QW
     Route: 058
     Dates: start: 20120919
  7. GASTROM [Concomitant]
     Dosage: 3 G, QD
     Route: 048
  8. FAMOTIDINE [Concomitant]
     Dosage: 40 MG, QD
     Route: 048
     Dates: end: 20120907
  9. FAMOTIDINE [Concomitant]
     Dosage: 40 MG, QD
     Route: 048
  10. MYSLEE [Concomitant]
     Dosage: 5 MG, QD
     Route: 048
  11. PALGIN [Concomitant]
     Dosage: 1 MG, QD
     Route: 048
  12. TALION [Concomitant]
     Dosage: 5 MG, QD
     Route: 048
     Dates: end: 20121005
  13. URSO [Concomitant]
     Dosage: 600 MG, QD
     Route: 048

REACTIONS (1)
  - Renal disorder [Recovered/Resolved]
